FAERS Safety Report 6917910-3 (Version None)
Quarter: 2010Q3

REPORT INFORMATION
  Report Type: 
  Country: None (occurrence: None)
  Receive Date: 20100810
  Receipt Date: 20100802
  Transmission Date: 20110219
  Serious: Yes (Other)
  Sender: FDA-Public Use
  Company Number: GB-AMGEN-QUU428925

PATIENT
  Sex: Female

DRUGS (3)
  1. NEULASTA [Suspect]
     Indication: CHEMOTHERAPY
     Route: 065
  2. CISPLATIN [Concomitant]
  3. VINORELBINE [Concomitant]

REACTIONS (2)
  - DIARRHOEA [None]
  - NEUTROPENIC SEPSIS [None]
